FAERS Safety Report 25868409 (Version 1)
Quarter: 2025Q4

REPORT INFORMATION
  Report Type: Spontaneous
  Country: IN (occurrence: IN)
  Receive Date: 20251001
  Receipt Date: 20251001
  Transmission Date: 20260118
  Serious: Yes (Other)
  Sender: GRANULES PHARMACEUTICALS INC
  Company Number: IN-GRANULES-IN-2025GRALIT00534

PATIENT
  Age: 2 Year
  Sex: Female

DRUGS (4)
  1. ZONISAMIDE [Suspect]
     Active Substance: ZONISAMIDE
     Indication: Epilepsy
     Route: 065
  2. VALPROATE [Concomitant]
     Active Substance: VALPROIC ACID
     Route: 065
  3. CLOBAZAM [Concomitant]
     Active Substance: CLOBAZAM
     Route: 065
  4. ACETAMINOPHEN [Concomitant]
     Active Substance: ACETAMINOPHEN
     Route: 065

REACTIONS (2)
  - Cutaneous vasculitis [Recovered/Resolved]
  - Product use issue [Unknown]
